FAERS Safety Report 18952802 (Version 1)
Quarter: 2021Q1

REPORT INFORMATION
  Report Type: Spontaneous
  Country: US (occurrence: US)
  Receive Date: 20210226
  Receipt Date: 20210226
  Transmission Date: 20210420
  Serious: Yes (Other)
  Sender: FDA-Public Use
  Company Number: None

PATIENT
  Age: 50 Year
  Sex: Female
  Weight: 48.6 kg

DRUGS (11)
  1. ATENOLOL. [Suspect]
     Active Substance: ATENOLOL
     Indication: BASEDOW^S DISEASE
     Dosage: ?          QUANTITY:170 TABLET(S);?
     Route: 048
  2. TOPIRIMATE [Concomitant]
     Active Substance: TOPIRAMATE
  3. OXCARBAZEPINE. [Concomitant]
     Active Substance: OXCARBAZEPINE
  4. LEVALBUTERAL [Concomitant]
  5. VITAMIN D3 [Concomitant]
     Active Substance: CHOLECALCIFEROL
  6. METHIMAZOLE. [Concomitant]
     Active Substance: METHIMAZOLE
  7. MAGNESIUM [Concomitant]
     Active Substance: MAGNESIUM
  8. FISH OIL [Concomitant]
     Active Substance: FISH OIL
  9. ATENOLOL. [Suspect]
     Active Substance: ATENOLOL
     Indication: POSTURAL ORTHOSTATIC TACHYCARDIA SYNDROME
     Dosage: ?          QUANTITY:170 TABLET(S);?
     Route: 048
  10. MIDODRINE [Concomitant]
     Active Substance: MIDODRINE
  11. VENTOLIN [Concomitant]
     Active Substance: ALBUTEROL SULFATE

REACTIONS (2)
  - Skin burning sensation [None]
  - Pruritus [None]

NARRATIVE: CASE EVENT DATE: 20201001
